FAERS Safety Report 4325753-2 (Version None)
Quarter: 2004Q1

REPORT INFORMATION
  Report Type: 
  Country: None (occurrence: None)
  Receive Date: 20040323
  Receipt Date: 20040311
  Transmission Date: 20041129
  Serious: Yes (Hospitalization)
  Sender: FDA-Public Use
  Company Number: 2004UW04810

PATIENT
  Age: 89 Year
  Sex: Male
  Weight: 69.4003 kg

DRUGS (3)
  1. PRILOSEC [Suspect]
  2. PRILOSEC [Suspect]
     Indication: HIATUS HERNIA
     Dates: end: 20040127
  3. ALLOPURINOL [Concomitant]

REACTIONS (5)
  - FAECES DISCOLOURED [None]
  - GENERAL SYMPTOM [None]
  - INTESTINAL POLYP [None]
  - JOINT LOCK [None]
  - WEIGHT DECREASED [None]
